FAERS Safety Report 7482458-7 (Version None)
Quarter: 2011Q2

REPORT INFORMATION
  Report Type: 
  Country: None (occurrence: None)
  Receive Date: 20110516
  Receipt Date: 20110503
  Transmission Date: 20111010
  Serious: Yes (Other)
  Sender: FDA-Public Use
  Company Number: US-WATSON-2011-06305

PATIENT
  Age: 79 Year
  Sex: Female

DRUGS (1)
  1. ALENDRONATE SODIUM [Suspect]
     Indication: OSTEOPOROSIS
     Route: 048

REACTIONS (3)
  - DIVERTICULITIS OESOPHAGEAL [None]
  - DYSPHAGIA [None]
  - ODYNOPHAGIA [None]
